FAERS Safety Report 9380509 (Version 2)
Quarter: 2013Q3

REPORT INFORMATION
  Report Type: Spontaneous
  Country: FR (occurrence: FR)
  Receive Date: 20130702
  Receipt Date: 20130816
  Transmission Date: 20140515
  Serious: Yes (Death)
  Sender: FDA-Public Use
  Company Number: FR-ACTELION-A-CH2013-85087

PATIENT
  Age: 17 Year
  Sex: Male
  Weight: 48 kg

DRUGS (5)
  1. REVATIO [Concomitant]
     Dosage: UNK
     Dates: start: 20080609, end: 2011
  2. LASILIX [Concomitant]
     Indication: CARDIAC FAILURE
     Dosage: UNK
     Dates: start: 2009, end: 2011
  3. KARDEGIC [Concomitant]
     Indication: EISENMENGER^S SYNDROME
     Dosage: UNK
     Dates: end: 2011
  4. MICROPAKINE [Concomitant]
     Indication: EPILEPSY
     Dosage: UNK
     Dates: start: 200711, end: 2011
  5. TRACLEER [Suspect]
     Indication: PULMONARY ARTERIAL HYPERTENSION
     Dosage: UNK
     Route: 048
     Dates: start: 20080109, end: 2011

REACTIONS (3)
  - Sudden death [Fatal]
  - Pulmonary arterial hypertension [Unknown]
  - Condition aggravated [Unknown]
